FAERS Safety Report 7068379 (Version 2)
Quarter: 2014Q2

REPORT INFORMATION
  Report Type: Spontaneous
  Country: US (occurrence: None)
  Receive Date: 20090724
  Receipt Date: 20140430
  Transmission Date: 20141212
  Serious: Yes (Hospitalization, Other)
  Sender: FDA-Public Use
  Company Number: 2009S1005532

PATIENT
  Age: 55 Year
  Sex: Female
  Weight: 81.65 kg

DRUGS (9)
  1. FLEET PHOSPHO-SODA ORAL SALINE LAXATIVE, GINGER-LEMON FLAVOR [Suspect]
     Indication: COLONOSCOPY
     Dosage: 2 IN 24 HOURS
     Route: 048
     Dates: start: 20071014, end: 20071014
  2. FLEET ENEMA [Suspect]
     Indication: COLONOSCOPY
     Dosage: 2 IN 24 HOURS, RECTAL
     Dates: start: 20071015, end: 20071015
  3. DULCOLAX (BISACODYL) [Suspect]
     Indication: COLONOSCOPY
     Dates: start: 20071013, end: 20071013
  4. CITRATE OF MAGNESIUM [Suspect]
     Indication: COLONOSCOPY
  5. METFORMIN (METFORMIN) [Concomitant]
  6. LOVASTATIN (LOVASTATIN) [Concomitant]
  7. LISINOPRIL (LISINOPRIL) [Concomitant]
  8. ATENOLOL (ATENOLOL) [Concomitant]
  9. ISORDIL (ISOSORBIDE DINITRATE) [Concomitant]

REACTIONS (20)
  - Renal failure acute [None]
  - Chest pain [None]
  - Back pain [None]
  - Myalgia [None]
  - Headache [None]
  - Diarrhoea [None]
  - Hypotension [None]
  - Macrocytosis [None]
  - Dyspnoea [None]
  - Palpitations [None]
  - Nausea [None]
  - Dizziness [None]
  - Hypocalcaemia [None]
  - Dialysis [None]
  - Urinary tract infection [None]
  - Cystitis [None]
  - Azotaemia [None]
  - Metabolic acidosis [None]
  - Nephrogenic anaemia [None]
  - Acute phosphate nephropathy [None]
